FAERS Safety Report 9909512 (Version 1)
Quarter: 2014Q1

REPORT INFORMATION
  Report Type: Spontaneous
  Country: US (occurrence: None)
  Receive Date: 20140214
  Receipt Date: 20140214
  Transmission Date: 20141002
  Serious: No
  Sender: FDA-Public Use
  Company Number: None

PATIENT
  Age: 66 Year
  Sex: Male

DRUGS (9)
  1. LITHIUM [Suspect]
     Dosage: 1350 SR   PO
     Route: 048
  2. TOPIRAMATE [Concomitant]
  3. ABILIFY [Concomitant]
  4. NIACIN ER [Concomitant]
  5. MELATONIN [Concomitant]
  6. LEVOTHYROXINE [Concomitant]
  7. SIMVASTATIN [Concomitant]
  8. OMEPRAZOLE [Concomitant]
  9. CLONAZEPAM [Concomitant]

REACTIONS (2)
  - Drug interaction [None]
  - Drug level increased [None]
